FAERS Safety Report 8583099-0 (Version None)
Quarter: 2012Q3

REPORT INFORMATION
  Report Type: 
  Country: None (occurrence: None)
  Receive Date: 20120809
  Receipt Date: 20120731
  Transmission Date: 20120928
  Serious: Yes (Hospitalization, Other)
  Sender: FDA-Public Use
  Company Number: US-UCBSA-061690

PATIENT
  Age: 39 Year
  Sex: Male

DRUGS (2)
  1. KEPPRA [Suspect]
     Indication: PARTIAL SEIZURES
     Dosage: UNKNOWN
     Dates: start: 20110901
  2. TEMODAR [Concomitant]
     Indication: OLIGODENDROGLIOMA

REACTIONS (2)
  - OLIGODENDROGLIOMA [None]
  - PARTIAL SEIZURES [None]
